FAERS Safety Report 5563816-4 (Version None)
Quarter: 2007Q4

REPORT INFORMATION
  Report Type: 
  Country: None (occurrence: None)
  Receive Date: 20071217
  Receipt Date: 20070912
  Transmission Date: 20080405
  Serious: No
  Sender: FDA-Public Use
  Company Number: US-ASTRAZENECA-2007UW21537

PATIENT
  Age: 59 Year
  Sex: Male

DRUGS (2)
  1. CRESTOR [Suspect]
     Route: 048
     Dates: start: 20070901, end: 20070901
  2. LUNESTA [Concomitant]

REACTIONS (1)
  - MICTURITION DISORDER [None]
